FAERS Safety Report 5798693-X (Version None)
Quarter: 2008Q3

REPORT INFORMATION
  Report Type: 
  Country: None (occurrence: None)
  Receive Date: 20080702
  Receipt Date: 20080623
  Transmission Date: 20090109
  Serious: Yes (Hospitalization, Other)
  Sender: FDA-Public Use
  Company Number: GB-ABBOTT-08P-167-0459195-00

PATIENT
  Sex: Male
  Weight: 87.6 kg

DRUGS (2)
  1. HUMIRA [Suspect]
     Indication: PSORIASIS
     Route: 058
     Dates: start: 20071106
  2. MESALAMINE [Concomitant]
     Indication: CROHN'S DISEASE
     Dosage: 3X400 MG BID
     Route: 048
     Dates: start: 19960101

REACTIONS (1)
  - PULMONARY EMBOLISM [None]
